APPROVED DRUG PRODUCT: RAMIPRIL
Active Ingredient: RAMIPRIL
Strength: 5MG
Dosage Form/Route: TABLET;ORAL
Application: A090697 | Product #003
Applicant: ZYDUS PHARMACEUTICALS USA INC
Approved: Sep 24, 2009 | RLD: No | RS: No | Type: DISCN